FAERS Safety Report 9769463 (Version 4)
Quarter: 2016Q1

REPORT INFORMATION
  Report Type: Report from Study
  Country: DE (occurrence: DE)
  Receive Date: 20131218
  Receipt Date: 20160106
  Transmission Date: 20160526
  Serious: Yes (Other)
  Sender: FDA-Public Use
  Company Number: DE-ELI_LILLY_AND_COMPANY-DE201311006299

PATIENT
  Age: 58 Year
  Sex: Female
  Weight: 88 kg

DRUGS (6)
  1. MORPHIN                            /00036303/ [Concomitant]
     Active Substance: MORPHINE
     Indication: SPINAL DISORDER
     Dosage: 0.5 ML, UNK
     Dates: start: 20070101
  2. OLANZAPINE. [Concomitant]
     Active Substance: OLANZAPINE
     Indication: SCHIZOPHRENIA
     Dosage: 10 MG, UNK
     Dates: start: 20120924, end: 20130702
  3. ZYPADHERA [Suspect]
     Active Substance: OLANZAPINE PAMOATE
     Indication: SCHIZOPHRENIA
     Dosage: 405 MG, MONTHLY (1/M)
     Route: 030
     Dates: start: 20121120, end: 20151119
  4. METFORMIN [Concomitant]
     Active Substance: METFORMIN HYDROCHLORIDE
     Indication: DIABETES MELLITUS
     Dosage: 2.5 G, UNK
     Dates: start: 20010101
  5. BELOC-ZOK [Concomitant]
     Active Substance: METOPROLOL SUCCINATE
     Indication: HYPERTENSION
     Dosage: 23.7 MG, QD
     Dates: start: 20020101
  6. PROTHYRID [Concomitant]
     Active Substance: LEVOTHYROXINE SODIUM
     Dosage: 200 UG, UNK
     Dates: start: 19570101

REACTIONS (5)
  - Dizziness [Recovered/Resolved]
  - Dysarthria [Recovered/Resolved]
  - Ataxia [Recovered/Resolved]
  - Hypertension [Recovered/Resolved]
  - Fatigue [Recovered/Resolved]

NARRATIVE: CASE EVENT DATE: 20131119
